FAERS Safety Report 9548300 (Version 3)
Quarter: 2015Q1

REPORT INFORMATION
  Report Type: Report from Study
  Country: BR (occurrence: BR)
  Receive Date: 20130924
  Receipt Date: 20150303
  Transmission Date: 20150721
  Serious: Yes (Hospitalization, Other)
  Sender: FDA-Public Use
  Company Number: BR-ROCHE-1279943

PATIENT
  Sex: Male
  Weight: 70 kg

DRUGS (1)
  1. MABTHERA [Suspect]
     Active Substance: RITUXIMAB
     Indication: RHEUMATOID ARTHRITIS
     Route: 065
     Dates: start: 201108

REACTIONS (4)
  - Pain in extremity [Not Recovered/Not Resolved]
  - Amnesia [Recovered/Resolved]
  - Hypertension [Recovered/Resolved]
  - Hydrocephalus [Recovered/Resolved]
